FAERS Safety Report 15478339 (Version 2)
Quarter: 2018Q4

REPORT INFORMATION
  Report Type: Spontaneous
  Country: US (occurrence: US)
  Receive Date: 20181009
  Receipt Date: 20181213
  Transmission Date: 20190205
  Serious: No
  Sender: FDA-Public Use
  Company Number: US-SA-2018SA114029

PATIENT
  Sex: Female

DRUGS (1)
  1. DUPIXENT [Suspect]
     Active Substance: DUPILUMAB
     Indication: DERMATITIS ATOPIC
     Dosage: 300 MG,QOW
     Route: 058
     Dates: start: 20170715

REACTIONS (6)
  - Injection site haemorrhage [Recovered/Resolved]
  - Product dose omission [Unknown]
  - Skin irritation [Unknown]
  - Pruritus [Unknown]
  - Dermatitis [Unknown]
  - Erythema [Unknown]
